FAERS Safety Report 17016973 (Version 1)
Quarter: 2019Q4

REPORT INFORMATION
  Report Type: Spontaneous
  Country: US (occurrence: US)
  Receive Date: 20191004
  Receipt Date: 20191004
  Transmission Date: 20200122
  Serious: Yes (Other)
  Sender: FDA-Public Use
  Company Number: None

PATIENT
  Age: 51 Year
  Sex: Female

DRUGS (2)
  1. HEMPLUCID CBD OIL 1000 MG VAPING [Suspect]
     Active Substance: CANNABIDIOL\HERBALS
     Indication: ANXIETY
     Route: 048
  2. HEMPLUCID CBD OIL 1000 MG VAPING [Suspect]
     Active Substance: CANNABIDIOL\HERBALS
     Indication: ARTHRALGIA
     Route: 048

REACTIONS (1)
  - Lung opacity [None]

NARRATIVE: CASE EVENT DATE: 20190809
